FAERS Safety Report 14380803 (Version 1)
Quarter: 2018Q1

REPORT INFORMATION
  Report Type: Spontaneous
  Country: US (occurrence: US)
  Receive Date: 20180112
  Receipt Date: 20180112
  Transmission Date: 20180509
  Serious: Yes (Life-Threatening, Hospitalization)
  Sender: FDA-Public Use
  Company Number: US-VIFOR (INTERNATIONAL) INC.-VIT-2018-00264

PATIENT
  Age: 57 Year
  Sex: Female
  Weight: 66.7 kg

DRUGS (1)
  1. MIRCERA [Suspect]
     Active Substance: METHOXY POLYETHYLENE GLYCOL-EPOETIN BETA
     Indication: NEPHROGENIC ANAEMIA
     Dosage: 75MCG SYRINGES X3
     Route: 040
     Dates: start: 20180103, end: 20180103

REACTIONS (5)
  - Restlessness [Unknown]
  - Seizure [Unknown]
  - Muscle twitching [Unknown]
  - Unresponsive to stimuli [Unknown]
  - Tremor [Unknown]

NARRATIVE: CASE EVENT DATE: 20180103
